FAERS Safety Report 16995400 (Version 7)
Quarter: 2020Q4

REPORT INFORMATION
  Report Type: Spontaneous
  Country: US (occurrence: US)
  Receive Date: 20191105
  Receipt Date: 20201028
  Transmission Date: 20210113
  Serious: Yes (Other)
  Sender: FDA-Public Use
  Company Number: US-PFIZER INC-2019474713

PATIENT
  Age: 69 Year
  Sex: Male

DRUGS (4)
  1. XELJANZ [Suspect]
     Active Substance: TOFACITINIB CITRATE
     Indication: PSORIASIS
     Dosage: 5 MG
     Dates: start: 201908
  2. OTREXUP [Concomitant]
     Active Substance: METHOTREXATE
     Dosage: UNK, CYCLIC (EVERY 2 WEEKS)
  3. OTREXUP [Concomitant]
     Active Substance: METHOTREXATE
     Dosage: 25 MG
  4. OTREXUP [Concomitant]
     Active Substance: METHOTREXATE
     Dosage: UNK, WEEKLY

REACTIONS (7)
  - Off label use [Unknown]
  - Asthenia [Unknown]
  - Rib fracture [Unknown]
  - Drug ineffective for unapproved indication [Unknown]
  - Fall [Unknown]
  - Condition aggravated [Unknown]
  - Bronchitis [Unknown]

NARRATIVE: CASE EVENT DATE: 201908
